FAERS Safety Report 20004268 (Version 2)
Quarter: 2021Q4

REPORT INFORMATION
  Report Type: Spontaneous
  Country: US (occurrence: US)
  Receive Date: 20211028
  Receipt Date: 20211105
  Transmission Date: 20220303
  Serious: Yes (Hospitalization, Other)
  Sender: FDA-Public Use
  Company Number: US-AUROBINDO-AUR-APL-2021-043780

PATIENT
  Weight: 61.7 kg

DRUGS (2)
  1. ETOMIDATE [Suspect]
     Active Substance: ETOMIDATE
     Indication: Sedation
     Dosage: ADMINISTERED AS SINGLE BOLUS DOSE
     Route: 042
     Dates: start: 20211006, end: 20211006
  2. ETOMIDATE [Suspect]
     Active Substance: ETOMIDATE
     Indication: Electroconvulsive therapy

REACTIONS (2)
  - Seizure [Recovered/Resolved]
  - Product use in unapproved indication [Unknown]

NARRATIVE: CASE EVENT DATE: 20211006
